FAERS Safety Report 13840443 (Version 4)
Quarter: 2018Q1

REPORT INFORMATION
  Report Type: Spontaneous
  Country: US (occurrence: US)
  Receive Date: 20170807
  Receipt Date: 20180309
  Transmission Date: 20180508
  Serious: Yes (Life-Threatening, Other)
  Sender: FDA-Public Use
  Company Number: US-009507513-1708USA002210

PATIENT
  Age: 29 Year
  Sex: Female

DRUGS (11)
  1. FUROSEMIDE. [Interacting]
     Active Substance: FUROSEMIDE
     Indication: CARDIAC FAILURE CHRONIC
  2. IVABRADINE [Interacting]
     Active Substance: IVABRADINE
     Indication: HEART RATE
     Dosage: ON INITIAL DOSE
  3. METOPROLOL. [Interacting]
     Active Substance: METOPROLOL
     Indication: CARDIAC FAILURE CHRONIC
     Dosage: UNK
  4. PRINIVIL [Concomitant]
     Active Substance: LISINOPRIL
     Indication: CARDIAC FAILURE CHRONIC
     Dosage: UNK
     Route: 048
  5. IVABRADINE [Interacting]
     Active Substance: IVABRADINE
     Indication: CONGESTIVE CARDIOMYOPATHY
  6. METOPROLOL. [Interacting]
     Active Substance: METOPROLOL
     Indication: CONGESTIVE CARDIOMYOPATHY
  7. SPIRONOLACTONE. [Concomitant]
     Active Substance: SPIRONOLACTONE
     Indication: CARDIAC FAILURE CHRONIC
     Dosage: UNK
  8. SPIRONOLACTONE. [Concomitant]
     Active Substance: SPIRONOLACTONE
     Indication: CONGESTIVE CARDIOMYOPATHY
  9. FUROSEMIDE. [Suspect]
     Active Substance: FUROSEMIDE
     Indication: CONGESTIVE CARDIOMYOPATHY
     Dosage: UNK
     Route: 048
  10. IVABRADINE [Interacting]
     Active Substance: IVABRADINE
     Indication: CARDIAC FAILURE CHRONIC
  11. PRINIVIL [Concomitant]
     Active Substance: LISINOPRIL
     Indication: CONGESTIVE CARDIOMYOPATHY

REACTIONS (5)
  - Ventricular fibrillation [Unknown]
  - Torsade de pointes [Unknown]
  - Cardio-respiratory arrest [Unknown]
  - Ventricular tachycardia [Unknown]
  - Drug interaction [Unknown]
